FAERS Safety Report 9155467 (Version 1)
Quarter: 2013Q1

REPORT INFORMATION
  Report Type: Spontaneous
  Country: US (occurrence: US)
  Receive Date: 20130311
  Receipt Date: 20130311
  Transmission Date: 20140127
  Serious: Yes (Hospitalization)
  Sender: FDA-Public Use
  Company Number: US-BAYER-2013-027794

PATIENT
  Age: 57 Year
  Sex: Male
  Weight: 110 kg

DRUGS (3)
  1. PARACETAMOL + DIPHENHYDRAMINE [Suspect]
     Dosage: 4 DF, ONCE
     Route: 048
  2. ARSENIC [Suspect]
     Dosage: 84 G
     Route: 048
  3. MELATONIN [Concomitant]
     Dosage: 3 DF, ONCE
     Route: 048

REACTIONS (6)
  - Incorrect dose administered [None]
  - Poisoning deliberate [Recovered/Resolved]
  - Sinus tachycardia [None]
  - White blood cell count increased [None]
  - Blood pressure increased [None]
  - Nausea [None]
